FAERS Safety Report 4974896-9 (Version None)
Quarter: 2006Q1

REPORT INFORMATION
  Report Type: 
  Country: None (occurrence: None)
  Receive Date: 20060227
  Receipt Date: 20060127
  Transmission Date: 20060701
  Serious: No
  Sender: FDA-Public Use
  Company Number: PHEH2006US01492

PATIENT
  Age: 64 Year
  Sex: Female

DRUGS (1)
  1. ENABLEX [Suspect]
     Indication: POLLAKIURIA
     Dosage: 7.5 MG ,QD,
     Dates: start: 20050117

REACTIONS (2)
  - DRY MOUTH [None]
  - DYSGEUSIA [None]
